FAERS Safety Report 15515772 (Version 1)
Quarter: 2018Q4

REPORT INFORMATION
  Report Type: Report from Study
  Country: None (occurrence: CA)
  Receive Date: 20181017
  Receipt Date: 20181017
  Transmission Date: 20190205
  Serious: Yes (Other)
  Sender: FDA-Public Use
  Company Number: CA-ABBVIE-18K-028-2520294-00

PATIENT
  Sex: Female

DRUGS (1)
  1. HUMIRA [Suspect]
     Active Substance: ADALIMUMAB
     Indication: CROHN^S DISEASE
     Route: 058
     Dates: start: 20100515

REACTIONS (4)
  - Intestinal obstruction [Recovered/Resolved]
  - Abdominal pain [Not Recovered/Not Resolved]
  - Impaired quality of life [Unknown]
  - Impaired work ability [Unknown]
